FAERS Safety Report 4443034-3 (Version None)
Quarter: 2004Q3

REPORT INFORMATION
  Report Type: 
  Country: None (occurrence: None)
  Receive Date: 20040903
  Receipt Date: 20040601
  Transmission Date: 20050211
  Serious: Yes (Other)
  Sender: FDA-Public Use
  Company Number: 2004UW11311

PATIENT
  Age: 52 Year
  Sex: Female
  Weight: 81.6475 kg

DRUGS (7)
  1. CRESTOR [Suspect]
     Indication: BLOOD CHOLESTEROL INCREASED
     Dosage: 10 MG PO
     Route: 048
     Dates: start: 20040525
  2. NEXIUM [Concomitant]
  3. EFFEXOR [Concomitant]
  4. XANAX [Concomitant]
  5. POTASSIUM [Concomitant]
  6. THORAZINE [Concomitant]
  7. BENTYL [Concomitant]

REACTIONS (1)
  - FATIGUE [None]
